FAERS Safety Report 5542958-3 (Version None)
Quarter: 2007Q4

REPORT INFORMATION
  Report Type: 
  Country: None (occurrence: None)
  Receive Date: 20071210
  Receipt Date: 20071130
  Transmission Date: 20080405
  Serious: Yes (Other)
  Sender: FDA-Public Use
  Company Number: JP-MERCK-0707USA03718

PATIENT
  Age: 72 Year
  Sex: Female

DRUGS (5)
  1. ZETIA [Suspect]
     Indication: HYPERCHOLESTEROLAEMIA
     Route: 048
     Dates: start: 20070614, end: 20070626
  2. LIMAPROST ALFADEX [Concomitant]
     Indication: VARICOSE VEIN
     Route: 065
     Dates: start: 20010101
  3. SARPOGRELATE HYDROCHLORIDE [Concomitant]
     Route: 065
     Dates: start: 20070208
  4. SENNA [Concomitant]
     Indication: HYPERCHOLESTEROLAEMIA
     Route: 065
     Dates: start: 20030731
  5. BERAPROST SODIUM [Concomitant]
     Route: 065
     Dates: start: 20030731

REACTIONS (1)
  - MALAISE [None]
